FAERS Safety Report 7430042-3 (Version None)
Quarter: 2011Q2

REPORT INFORMATION
  Report Type: 
  Country: None (occurrence: None)
  Receive Date: 20110419
  Receipt Date: 20110419
  Transmission Date: 20111010
  Serious: Yes (Hospitalization)
  Sender: FDA-Public Use
  Company Number: None

PATIENT
  Age: 65 Year
  Sex: Male
  Weight: 113.3993 kg

DRUGS (1)
  1. CARVEDILOL [Suspect]
     Indication: BLOOD PRESSURE INCREASED
     Dosage: 1 DAILY PO
     Route: 048
     Dates: start: 20110409, end: 20110411

REACTIONS (3)
  - DRUG PRESCRIBING ERROR [None]
  - CONTRAINDICATION TO MEDICAL TREATMENT [None]
  - DYSPNOEA [None]
